FAERS Safety Report 9525244 (Version 1)
Quarter: 2013Q3

REPORT INFORMATION
  Report Type: Spontaneous
  Country: US (occurrence: None)
  Receive Date: 20130913
  Receipt Date: 20130913
  Transmission Date: 20140515
  Serious: No
  Sender: FDA-Public Use
  Company Number: None

PATIENT
  Age: 87 Year
  Sex: Male

DRUGS (1)
  1. ZYTIGA [Suspect]
     Indication: PROSTATE CANCER
     Dosage: 1000 MG DAILY PO
     Route: 048
     Dates: start: 201308, end: 20130906

REACTIONS (3)
  - Pain in extremity [None]
  - Myalgia [None]
  - Gait disturbance [None]
